FAERS Safety Report 18258410 (Version 1)
Quarter: 2020Q3

REPORT INFORMATION
  Report Type: Other
  Country: US (occurrence: US)
  Receive Date: 20200911
  Receipt Date: 20200911
  Transmission Date: 20201103
  Serious: No
  Sender: FDA-Public Use
  Company Number: US-LEADIANT BIOSCIENCES INC-2019STPI000564

PATIENT

DRUGS (12)
  1. VITAMIN C [Concomitant]
     Active Substance: ASCORBIC ACID
  2. IRON [Concomitant]
     Active Substance: IRON
  3. GLEOSTINE [Concomitant]
     Active Substance: LOMUSTINE
  4. VITAMINS NOS [Concomitant]
     Active Substance: VITAMINS
  5. MATULANE [Suspect]
     Active Substance: PROCARBAZINE HYDROCHLORIDE
     Dosage: UNK
     Dates: start: 20190917
  6. ALENDRONATE [Concomitant]
     Active Substance: ALENDRONATE SODIUM
  7. BENADRYL [DIPHENHYDRAMINE;PARACETAMOL;PHENYLPROPANOLAMINE HYDROCHLORID [Concomitant]
  8. OMEGA 3 COMPLETE [Concomitant]
  9. CALCIUM [Concomitant]
     Active Substance: CALCIUM
  10. MATULANE [Suspect]
     Active Substance: PROCARBAZINE HYDROCHLORIDE
     Indication: BRAIN NEOPLASM MALIGNANT
     Dosage: 50 MILLIGRAM, BID DAYS 8?12 OF 42 DAY CYCLE
     Route: 048
     Dates: start: 20190710
  11. LEVETIRACETAM. [Concomitant]
     Active Substance: LEVETIRACETAM
  12. VITAMIN B12 [Concomitant]
     Active Substance: CYANOCOBALAMIN

REACTIONS (3)
  - Memory impairment [Unknown]
  - Platelet count decreased [Unknown]
  - Blood count abnormal [Unknown]

NARRATIVE: CASE EVENT DATE: 201909
